FAERS Safety Report 4798414-3 (Version None)
Quarter: 2005Q4

REPORT INFORMATION
  Report Type: 
  Country: None (occurrence: None)
  Receive Date: 20051014
  Receipt Date: 20051003
  Transmission Date: 20060501
  Serious: Yes (Disabling)
  Sender: FDA-Public Use
  Company Number: 2005GB01917

PATIENT
  Age: 9 Year
  Sex: Female

DRUGS (1)
  1. EMLA [Suspect]
     Indication: VENIPUNCTURE
     Route: 061
     Dates: start: 20050916, end: 20050916

REACTIONS (3)
  - RESTLESSNESS [None]
  - SOMNOLENCE [None]
  - SYNCOPE [None]
